FAERS Safety Report 16367397 (Version 1)
Quarter: 2019Q2

REPORT INFORMATION
  Report Type: Spontaneous
  Country: US (occurrence: US)
  Receive Date: 20190529
  Receipt Date: 20190529
  Transmission Date: 20190711
  Serious: No
  Sender: FDA-Public Use
  Company Number: US-PFIZER INC-2019225782

PATIENT
  Age: 35 Year
  Sex: Female
  Weight: 56.7 kg

DRUGS (2)
  1. LYRICA [Suspect]
     Active Substance: PREGABALIN
     Indication: SEIZURE
     Dosage: 150 MG, 2X/DAY, [TWO CAPSULES TWICE A DAY]
     Route: 048
  2. ZONISAMIDE. [Concomitant]
     Active Substance: ZONISAMIDE
     Indication: SEIZURE
     Dosage: 300 MG, 2X/DAY, [TAKING THREE OF THEM TWICE A DAY]

REACTIONS (1)
  - Anxiety [Unknown]
